FAERS Safety Report 9688624 (Version 2)
Quarter: 2013Q4

REPORT INFORMATION
  Report Type: Spontaneous
  Country: FR (occurrence: FR)
  Receive Date: 20131114
  Receipt Date: 20131209
  Transmission Date: 20140711
  Serious: Yes (Hospitalization)
  Sender: FDA-Public Use
  Company Number: FR-BRISTOL-MYERS SQUIBB COMPANY-19809615

PATIENT
  Age: 56 Year
  Sex: Male

DRUGS (6)
  1. METFORMIN HCL [Suspect]
     Indication: DIABETES MELLITUS
     Dosage: 850 MG?13NOV12-28DEC12?29DEC12-13MAR13
     Route: 048
     Dates: start: 20121113, end: 20130313
  2. ALLOPURINOL [Concomitant]
  3. CITALOPRAM [Concomitant]
  4. AOTAL [Concomitant]
  5. SERESTA [Concomitant]
  6. CO-RENITEC [Concomitant]

REACTIONS (2)
  - Rash erythematous [Recovered/Resolved]
  - Dermatitis psoriasiform [Recovered/Resolved]
